FAERS Safety Report 5490809-8 (Version None)
Quarter: 2007Q4

REPORT INFORMATION
  Report Type: 
  Country: None (occurrence: None)
  Receive Date: 20071019
  Receipt Date: 20071009
  Transmission Date: 20080405
  Serious: Yes (Hospitalization)
  Sender: FDA-Public Use
  Company Number: FR-JNJFOC-20071002205

PATIENT
  Age: 76 Year
  Sex: Male

DRUGS (9)
  1. OFLOCET [Suspect]
     Indication: ERYSIPELAS
     Route: 048
     Dates: start: 20070614, end: 20070712
  2. LASIX [Suspect]
     Indication: DRUG USE FOR UNKNOWN INDICATION
     Route: 048
     Dates: start: 20070614
  3. LOVENOX [Suspect]
     Indication: DRUG USE FOR UNKNOWN INDICATION
     Route: 050
     Dates: end: 20070625
  4. ORBENINE [Suspect]
     Indication: DRUG USE FOR UNKNOWN INDICATION
     Route: 048
  5. CORDARONE [Suspect]
     Indication: DRUG USE FOR UNKNOWN INDICATION
     Route: 048
  6. PLAVIX [Suspect]
     Indication: DRUG USE FOR UNKNOWN INDICATION
     Route: 048
     Dates: end: 20070627
  7. AMLOR [Concomitant]
     Route: 048
  8. ATARAX [Concomitant]
     Route: 048
  9. OGAST [Concomitant]
     Route: 048

REACTIONS (1)
  - HAEMATOMA [None]
